FAERS Safety Report 12210947 (Version 1)
Quarter: 2016Q1

REPORT INFORMATION
  Report Type: Spontaneous
  Country: US (occurrence: None)
  Receive Date: 20160324
  Receipt Date: 20160324
  Transmission Date: 20160526
  Serious: No
  Sender: FDA-Public Use
  Company Number: None

PATIENT
  Age: 75 Year
  Sex: Female

DRUGS (6)
  1. MATULANE [Suspect]
     Active Substance: PROCARBAZINE HYDROCHLORIDE
     Indication: HODGKIN^S DISEASE
     Dosage: 50MG 3 CAPS DAILY FOR 14 DAYS EVERY 28 DAY CYCLE PO
     Route: 048
     Dates: start: 20160209
  2. MAGNESIUM [Concomitant]
     Active Substance: MAGNESIUM
  3. LEUKERAN [Suspect]
     Active Substance: CHLORAMBUCIL
     Indication: HODGKIN^S DISEASE
     Dosage: 2 MG 5 TABS DAILY FOR 14 DAYS EVERY 28 DAY CYCLE PO
     Route: 048
     Dates: start: 20160209
  4. LISINOPRIL AND HYDROCHLOROTHIAZIDE [Concomitant]
     Active Substance: HYDROCHLOROTHIAZIDE\LISINOPRIL
  5. CARVEDILOL. [Concomitant]
     Active Substance: CARVEDILOL
  6. POTCHLORIDE [Concomitant]

REACTIONS (1)
  - Hypoaesthesia [None]

NARRATIVE: CASE EVENT DATE: 20160320
